FAERS Safety Report 8605148-3 (Version None)
Quarter: 2012Q3

REPORT INFORMATION
  Report Type: 
  Country: None (occurrence: None)
  Receive Date: 20120820
  Receipt Date: 20120810
  Transmission Date: 20120928
  Serious: Yes (Other)
  Sender: FDA-Public Use
  Company Number: JP-PFIZER INC-2012168493

PATIENT
  Age: 81 Year
  Sex: Female

DRUGS (3)
  1. AZULFIDINE [Suspect]
     Indication: RHEUMATOID ARTHRITIS
     Dosage: UNK
     Route: 048
     Dates: end: 20120712
  2. ZOLPIDEM [Concomitant]
     Dosage: UNK
     Dates: end: 20120712
  3. CELEBREX [Concomitant]
     Dosage: UNK
     Dates: end: 20120712

REACTIONS (1)
  - OCULOMUCOCUTANEOUS SYNDROME [None]
